FAERS Safety Report 6084014-4 (Version None)
Quarter: 2009Q1

REPORT INFORMATION
  Report Type: 
  Country: None (occurrence: None)
  Receive Date: 20090219
  Receipt Date: 20090211
  Transmission Date: 20090719
  Serious: Yes (Other)
  Sender: FDA-Public Use
  Company Number: US-PFIZER INC-2009168073

PATIENT
  Sex: Female
  Weight: 57 kg

DRUGS (2)
  1. LIPITOR [Suspect]
     Dates: start: 20000101, end: 20090101
  2. FOLIC ACID [Concomitant]

REACTIONS (1)
  - CROHN'S DISEASE [None]
